FAERS Safety Report 15683039 (Version 1)
Quarter: 2018Q4

REPORT INFORMATION
  Report Type: Spontaneous
  Country: CH (occurrence: CH)
  Receive Date: 20181204
  Receipt Date: 20181204
  Transmission Date: 20190205
  Serious: Yes (Hospitalization, Other)
  Sender: FDA-Public Use
  Company Number: CH-BAXTER-2018BAX027946

PATIENT
  Age: 42 Year
  Sex: Female

DRUGS (1)
  1. TISSEEL [Suspect]
     Active Substance: FIBRINOGEN HUMAN\THROMBIN HUMAN
     Indication: TISSUE SEALING
     Dosage: 0.5 ML AT THE SITUS, REST AT THE MASTOID
     Route: 065
     Dates: start: 20180904, end: 20180904

REACTIONS (3)
  - Post procedural complication [Recovered/Resolved]
  - Cerebrospinal fistula [Unknown]
  - Cerebrospinal fluid leakage [Recovered/Resolved]

NARRATIVE: CASE EVENT DATE: 201809
